FAERS Safety Report 12667111 (Version 1)
Quarter: 2016Q3

REPORT INFORMATION
  Report Type: Spontaneous
  Country: US (occurrence: US)
  Receive Date: 20160819
  Receipt Date: 20160819
  Transmission Date: 20161109
  Serious: No
  Sender: FDA-Public Use
  Company Number: US-JNJFOC-20160726038

PATIENT
  Sex: Male

DRUGS (9)
  1. ASPIRIN. [Concomitant]
     Active Substance: ASPIRIN
     Route: 065
  2. TYLENOL [Concomitant]
     Active Substance: ACETAMINOPHEN
     Route: 065
  3. OXYCONTIN [Concomitant]
     Active Substance: OXYCODONE HYDROCHLORIDE
     Route: 065
  4. ZYTIGA [Suspect]
     Active Substance: ABIRATERONE ACETATE
     Indication: PRODUCT USED FOR UNKNOWN INDICATION
     Route: 048
  5. LUPRON [Concomitant]
     Active Substance: LEUPROLIDE ACETATE
     Route: 065
  6. PREDNISONE. [Concomitant]
     Active Substance: PREDNISONE
     Route: 065
  7. XGEVA [Concomitant]
     Active Substance: DENOSUMAB
     Route: 065
  8. AMLODIPINE [Concomitant]
     Active Substance: AMLODIPINE BESYLATE
     Route: 065
  9. METOPROLOL. [Concomitant]
     Active Substance: METOPROLOL
     Route: 065

REACTIONS (3)
  - Drug level increased [Unknown]
  - Prostatic specific antigen increased [Unknown]
  - Norepinephrine increased [Unknown]
